FAERS Safety Report 15714580 (Version 1)
Quarter: 2018Q4

REPORT INFORMATION
  Report Type: Report from Study
  Country: CA (occurrence: CA)
  Receive Date: 20181212
  Receipt Date: 20181212
  Transmission Date: 20190205
  Serious: Yes (Other)
  Sender: FDA-Public Use
  Company Number: CA-JNJFOC-20180901156

PATIENT
  Age: 29 Year
  Sex: Female
  Weight: 70.9 kg

DRUGS (1)
  1. STELARA [Suspect]
     Active Substance: USTEKINUMAB
     Indication: CROHN^S DISEASE
     Dosage: STRENGTH = 90 MG
     Route: 058

REACTIONS (6)
  - Photophobia [Unknown]
  - Arthralgia [Unknown]
  - General physical health deterioration [Unknown]
  - Abdominal pain [Unknown]
  - Benign spleen tumour [Unknown]
  - Nephrolithiasis [Unknown]

NARRATIVE: CASE EVENT DATE: 201807
